FAERS Safety Report 14740288 (Version 18)
Quarter: 2019Q2

REPORT INFORMATION
  Report Type: Report from Study
  Country: US (occurrence: US)
  Receive Date: 20180410
  Receipt Date: 20190522
  Transmission Date: 20190711
  Serious: Yes (Hospitalization, Other)
  Sender: FDA-Public Use
  Company Number: PHHO2017US008802

PATIENT
  Age: 80 Year
  Sex: Female
  Weight: 99.8 kg

DRUGS (18)
  1. BLINDED PLACEBO [Suspect]
     Active Substance: INVESTIGATIONAL PRODUCT
     Indication: CARDIAC FAILURE
     Dosage: CODE NOT BROKEN
     Route: 048
     Dates: start: 20160824
  2. HYDRALAZINE [Concomitant]
     Active Substance: HYDRALAZINE HYDROCHLORIDE
     Dosage: UNK
     Route: 065
     Dates: start: 20180403
  3. FUROSEMIDE. [Suspect]
     Active Substance: FUROSEMIDE
     Indication: CARDIAC FAILURE
     Dosage: 100 MG, QD
     Route: 065
     Dates: start: 20170417, end: 20170609
  4. HYDRALAZINE [Concomitant]
     Active Substance: HYDRALAZINE HYDROCHLORIDE
     Indication: PULMONARY HYPERTENSION
     Dosage: 37.5 MG, TID
     Route: 065
     Dates: start: 20180316, end: 20180403
  5. ISOSORBIDE DINITRATE. [Concomitant]
     Active Substance: ISOSORBIDE DINITRATE
     Dosage: UNK
     Route: 065
     Dates: start: 20180403
  6. DRONEDARONE [Concomitant]
     Active Substance: DRONEDARONE
     Indication: ATRIAL FIBRILLATION
     Dosage: 400 MG, BID
     Route: 065
     Dates: start: 20170601, end: 20170609
  7. BLINDED LCZ696 [Suspect]
     Active Substance: SACUBITRIL\VALSARTAN
     Indication: CARDIAC FAILURE
     Dosage: CODE NOT BROKEN
     Route: 048
     Dates: start: 20160824
  8. CARVEDILOL. [Suspect]
     Active Substance: CARVEDILOL
     Indication: HYPERTENSION
     Dosage: 25 MG, BID
     Route: 065
     Dates: start: 20161219
  9. FUROSEMIDE. [Suspect]
     Active Substance: FUROSEMIDE
     Dosage: UNK
     Route: 065
     Dates: start: 20170628
  10. BUMETANIDE. [Suspect]
     Active Substance: BUMETANIDE
     Indication: PRODUCT USED FOR UNKNOWN INDICATION
     Dosage: UNK
     Route: 065
  11. COUMADIN [Concomitant]
     Active Substance: WARFARIN SODIUM
     Indication: PRODUCT USED FOR UNKNOWN INDICATION
     Dosage: UNK
     Route: 065
  12. CARVEDILOL. [Suspect]
     Active Substance: CARVEDILOL
     Indication: CARDIAC FAILURE
  13. FUROSEMIDE. [Suspect]
     Active Substance: FUROSEMIDE
     Dosage: 40 MG, BID
     Route: 065
     Dates: start: 20171222, end: 20180403
  14. ISOSORBIDE DINITRATE. [Concomitant]
     Active Substance: ISOSORBIDE DINITRATE
     Indication: PULMONARY HYPERTENSION
     Dosage: 20 MG, TID
     Route: 065
     Dates: start: 20180301, end: 20180403
  15. BLINDED NO TREATMENT RECEIVED [Suspect]
     Active Substance: INVESTIGATIONAL PRODUCT
     Indication: CARDIAC FAILURE
     Dosage: CODE NOT BROKEN
     Route: 048
     Dates: start: 20160824
  16. FUROSEMIDE. [Suspect]
     Active Substance: FUROSEMIDE
     Dosage: 40 MG, BID
     Route: 065
     Dates: start: 20170611, end: 20170622
  17. DIOVAN [Suspect]
     Active Substance: VALSARTAN
     Indication: CARDIAC FAILURE
     Dosage: CODE NOT BROKEN
     Route: 048
     Dates: start: 20160824
  18. AMLODIPINE [Suspect]
     Active Substance: AMLODIPINE BESYLATE
     Indication: HYPERTENSION
     Dosage: 5 MG, QD
     Route: 065
     Dates: start: 20161220, end: 20170609

REACTIONS (16)
  - Atrial fibrillation [Recovered/Resolved]
  - Dyspnoea exertional [Recovering/Resolving]
  - Fluid overload [Recovered/Resolved]
  - Chest discomfort [Recovered/Resolved]
  - Chest discomfort [Recovered/Resolved]
  - Fluid overload [Recovered/Resolved]
  - Chest discomfort [Not Recovered/Not Resolved]
  - Atrial fibrillation [Recovered/Resolved]
  - Hypotension [Recovered/Resolved]
  - Cardiac failure acute [Recovered/Resolved]
  - Fluid overload [Recovered/Resolved]
  - Hyperglycaemia [Recovering/Resolving]
  - Cardiac failure acute [Recovered/Resolved]
  - Respiratory failure [Recovered/Resolved]
  - Pneumonia [Recovering/Resolving]
  - Atrial fibrillation [Unknown]

NARRATIVE: CASE EVENT DATE: 20170525
